FAERS Safety Report 21202117 (Version 1)
Quarter: 2022Q3

REPORT INFORMATION
  Report Type: Spontaneous
  Country: US (occurrence: US)
  Receive Date: 20220811
  Receipt Date: 20220811
  Transmission Date: 20221026
  Serious: No
  Sender: FDA-Public Use
  Company Number: US-ANIPHARMA-2022-US-018489

PATIENT
  Sex: Female

DRUGS (5)
  1. CORTICOTROPIN [Suspect]
     Active Substance: CORTICOTROPIN
     Indication: Polymyositis
     Dosage: INJECT 80 UNITS (1ML) SUBCUTANEOUSLY TWICE WEEKLY
     Route: 058
  2. OMEGA 3 [Concomitant]
     Active Substance: CAPSAICIN
     Route: 065
  3. VITAMIN B2 [Concomitant]
     Active Substance: RIBOFLAVIN
     Route: 065
  4. MAGNESIUM OXIDE [Concomitant]
     Active Substance: MAGNESIUM OXIDE
     Route: 065
  5. MELATONIN [Concomitant]
     Active Substance: MELATONIN
     Route: 065

REACTIONS (2)
  - Nausea [Recovered/Resolved]
  - Hot flush [Recovered/Resolved]
